FAERS Safety Report 9178833 (Version 1)
Quarter: 2013Q1

REPORT INFORMATION
  Report Type: Spontaneous
  Country: US (occurrence: US)
  Receive Date: 20130321
  Receipt Date: 20130321
  Transmission Date: 20140127
  Serious: No
  Sender: FDA-Public Use
  Company Number: US-ASTRAZENECA-2013SE11588

PATIENT
  Age: 80 Year
  Sex: Male

DRUGS (2)
  1. RHINOCORT AQUA [Suspect]
     Indication: MULTIPLE ALLERGIES
     Dosage: 128 MCG, 2 PUFFS BID EACH NOSTRIL
     Route: 045
  2. RHINOCORT AQUA [Suspect]
     Indication: MULTIPLE ALLERGIES
     Dosage: 128 MCG, 1 SPRAY PER NOSTRIL
     Route: 045

REACTIONS (4)
  - Head discomfort [Recovered/Resolved]
  - Rhinorrhoea [Recovered/Resolved]
  - Off label use [Recovered/Resolved]
  - Intentional drug misuse [Unknown]
